FAERS Safety Report 17049578 (Version 1)
Quarter: 2019Q4

REPORT INFORMATION
  Report Type: Spontaneous
  Country: PL (occurrence: PL)
  Receive Date: 20191119
  Receipt Date: 20191119
  Transmission Date: 20200122
  Serious: Yes (Hospitalization, Other)
  Sender: FDA-Public Use
  Company Number: PL-MYLANLABS-2019M1110719

PATIENT
  Age: 23 Year
  Sex: Female

DRUGS (3)
  1. ZINC SULFATE. [Concomitant]
     Active Substance: ZINC SULFATE
     Dosage: 160 MILLIGRAM
  2. ARIPIPRAZOLE. [Suspect]
     Active Substance: ARIPIPRAZOLE
     Indication: ANXIETY
     Dosage: 20 MILLIGRAM
  3. OLANZAPINE. [Concomitant]
     Active Substance: OLANZAPINE
     Indication: ANXIETY
     Dosage: 10 MILLIGRAM

REACTIONS (4)
  - Suicidal ideation [Unknown]
  - Slow speech [Recovered/Resolved]
  - Tremor [Recovered/Resolved]
  - Dysphonia [Recovered/Resolved]
